FAERS Safety Report 16047111 (Version 2)
Quarter: 2019Q3

REPORT INFORMATION
  Report Type: Spontaneous
  Country: US (occurrence: US)
  Receive Date: 20190307
  Receipt Date: 20190809
  Transmission Date: 20191004
  Serious: Yes (Hospitalization, Other)
  Sender: FDA-Public Use
  Company Number: US-AMGEN-USASP2019033779

PATIENT
  Age: 61 Year
  Sex: Female
  Weight: 54.42 kg

DRUGS (4)
  1. REPATHA [Suspect]
     Active Substance: EVOLOCUMAB
     Indication: HYPERCHOLESTEROLAEMIA
     Dosage: 140 MG, Q2WK
     Route: 065
     Dates: start: 2017
  2. CELLCEPT [Suspect]
     Active Substance: MYCOPHENOLATE MOFETIL\MYCOPHENOLATE MOFETIL HYDROCHLORIDE
     Indication: PRODUCT USED FOR UNKNOWN INDICATION
     Dosage: UNK
     Route: 065
  3. SIROLIMUS. [Suspect]
     Active Substance: SIROLIMUS
     Indication: PRODUCT USED FOR UNKNOWN INDICATION
     Dosage: UNK
     Route: 065
  4. REPATHA [Suspect]
     Active Substance: EVOLOCUMAB
     Dosage: UNK
     Route: 065

REACTIONS (13)
  - Ill-defined disorder [Unknown]
  - Diarrhoea [Recovering/Resolving]
  - Drug dose omission by device [Unknown]
  - Dehydration [Recovering/Resolving]
  - Weight decreased [Recovering/Resolving]
  - Unevaluable event [Unknown]
  - Migraine [Recovering/Resolving]
  - Device issue [Unknown]
  - Immunosuppression [Unknown]
  - Blood pressure increased [Recovered/Resolved]
  - Diverticulitis [Unknown]
  - Clostridium difficile infection [Unknown]
  - Renal failure [Recovering/Resolving]

NARRATIVE: CASE EVENT DATE: 2019
